FAERS Safety Report 7058672-1 (Version None)
Quarter: 2010Q4

REPORT INFORMATION
  Report Type: 
  Country: None (occurrence: None)
  Receive Date: 20101022
  Receipt Date: 20101015
  Transmission Date: 20110411
  Serious: Yes (Hospitalization, Other)
  Sender: FDA-Public Use
  Company Number: US-AMGEN INC.-QUU445284

PATIENT

DRUGS (1)
  1. NPLATE [Suspect]
     Indication: THROMBOCYTOPENIA
     Dosage: UNK UNK, UNK
     Dates: start: 20091101, end: 20091101

REACTIONS (6)
  - CEREBRAL HAEMORRHAGE [None]
  - EMBOLISM ARTERIAL [None]
  - EYE HAEMORRHAGE [None]
  - HOSPITALISATION [None]
  - THROMBOSIS [None]
  - VISUAL IMPAIRMENT [None]
